FAERS Safety Report 7819979-0 (Version None)
Quarter: 2011Q4

REPORT INFORMATION
  Report Type: 
  Country: None (occurrence: None)
  Receive Date: 20111018
  Receipt Date: 20111014
  Transmission Date: 20120403
  Serious: Yes (Hospitalization)
  Sender: FDA-Public Use
  Company Number: JP-B.I. PHARMACEUTICALS,INC./RIDGEFIELD-2011-BP-24053NB

PATIENT
  Sex: Male

DRUGS (10)
  1. SPIRIVA [Suspect]
     Indication: EMPHYSEMA
     Dosage: 18 MCG
     Route: 055
     Dates: start: 20110728, end: 20110801
  2. CANDESARTAN CILEXETIL [Concomitant]
     Indication: HYPERTENSION
     Dosage: 4 MG
     Route: 048
  3. VOLTAREN [Suspect]
     Indication: PYREXIA
     Dosage: 25 MG
     Route: 054
     Dates: start: 20110720
  4. SG [Concomitant]
     Indication: PAIN
     Dosage: 1 G
     Route: 048
  5. ALLEGRA [Concomitant]
     Indication: PRURITUS
     Dosage: 120 MG
     Route: 048
  6. LANSOPRAZOLE [Concomitant]
     Dosage: 15 MG
     Route: 048
  7. THEO-DUR [Concomitant]
     Indication: EMPHYSEMA
     Dosage: 400 MG
     Route: 048
  8. EVAMYL [Concomitant]
     Indication: INSOMNIA
     Dosage: 0.1 MG
     Route: 048
  9. AMARYL [Concomitant]
     Indication: DIABETES MELLITUS
     Dosage: 1.5 MG
     Route: 048
  10. ALLOPURINOL [Concomitant]
     Indication: HYPERURICAEMIA
     Dosage: 200 MG
     Route: 048

REACTIONS (2)
  - URTICARIA [None]
  - PNEUMONIA [None]
